FAERS Safety Report 6939541-1 (Version None)
Quarter: 2010Q3

REPORT INFORMATION
  Report Type: 
  Country: None (occurrence: None)
  Receive Date: 20100824
  Receipt Date: 20100707
  Transmission Date: 20110219
  Serious: Yes (Hospitalization)
  Sender: FDA-Public Use
  Company Number: PHHY2010IT44802

PATIENT
  Sex: Female

DRUGS (2)
  1. VALPRESSION [Suspect]
     Indication: HYPERTENSION
     Dosage: 160 MG
     Route: 048
     Dates: start: 20100526
  2. VALPRESSION [Suspect]
     Dosage: UNK
     Dates: start: 20100527

REACTIONS (1)
  - URTICARIA [None]
